FAERS Safety Report 4502524-5 (Version None)
Quarter: 2004Q4

REPORT INFORMATION
  Report Type: 
  Country: None (occurrence: None)
  Receive Date: 20041112
  Receipt Date: 20041103
  Transmission Date: 20050328
  Serious: Yes (Hospitalization, Other)
  Sender: FDA-Public Use
  Company Number: HQWYE237904NOV04

PATIENT
  Age: 70 Year
  Sex: Male

DRUGS (3)
  1. INDERAL [Suspect]
     Indication: MIGRAINE
     Dosage: 10 MG 2X PER 1 DAY ORAL
     Route: 048
     Dates: start: 20040831, end: 20040831
  2. DIETHYLSTILBESTROL [Concomitant]
  3. SUMATRIPTAN [Concomitant]

REACTIONS (6)
  - CONDITION AGGRAVATED [None]
  - DRUG INEFFECTIVE [None]
  - FEELING ABNORMAL [None]
  - FEELING COLD [None]
  - HYPERHIDROSIS [None]
  - MIGRAINE [None]
